FAERS Safety Report 5043946-6 (Version None)
Quarter: 2006Q2

REPORT INFORMATION
  Report Type: 
  Country: None (occurrence: None)
  Receive Date: 20060601
  Receipt Date: 20060404
  Transmission Date: 20061013
  Serious: No
  Sender: FDA-Public Use
  Company Number: US200604000664

PATIENT
  Age: 45 Year
  Sex: Female

DRUGS (11)
  1. CYMBALTA [Suspect]
     Indication: NEURALGIA
     Dosage: 30 MG, ORAL
     Route: 048
     Dates: start: 20060403
  2. PROZAC [Suspect]
     Indication: NEURALGIA
     Dosage: SEE IMAGE
     Dates: start: 19910101
  3. ESTROGENS [Concomitant]
  4. VALIUM [Concomitant]
  5. XANAX /USA/ (ALPRAZOLAM) [Concomitant]
  6. SOMA [Concomitant]
  7. TRAMADOL HCL [Concomitant]
  8. OXYCODONE (OXYCODONE) [Concomitant]
  9. PREGABALIN (PREGABALIN) [Concomitant]
  10. TRAZODONE HCL [Concomitant]
  11. NEURONTIN [Concomitant]

REACTIONS (3)
  - EYE IRRITATION [None]
  - HEADACHE [None]
  - MEDICATION ERROR [None]
